FAERS Safety Report 4920705-3 (Version None)
Quarter: 2006Q1

REPORT INFORMATION
  Report Type: 
  Country: None (occurrence: None)
  Receive Date: 20060113
  Receipt Date: 20050915
  Transmission Date: 20060701
  Serious: No
  Sender: FDA-Public Use
  Company Number: 2005SP000832

PATIENT
  Age: 66 Year
  Sex: Female
  Weight: 112.4921 kg

DRUGS (6)
  1. LUNESTA [Suspect]
     Indication: INSOMNIA
     Dosage: 2 MG;HS;ORAL
     Route: 048
     Dates: start: 20050415, end: 20050601
  2. FUROSEMIDE [Concomitant]
  3. LOTREL [Concomitant]
  4. LABETALOL HCL [Concomitant]
  5. PRAVACHOL [Concomitant]
  6. ZOLOFT [Concomitant]

REACTIONS (1)
  - DYSGEUSIA [None]
